FAERS Safety Report 6697562-0 (Version None)
Quarter: 2010Q2

REPORT INFORMATION
  Report Type: 
  Country: None (occurrence: None)
  Receive Date: 20100426
  Receipt Date: 20100202
  Transmission Date: 20101027
  Serious: No
  Sender: FDA-Public Use
  Company Number: US-ABBOTT-10P-163-0624011-00

PATIENT
  Sex: Female

DRUGS (1)
  1. AZMACORT [Suspect]
     Indication: ASTHMA
     Route: 055
     Dates: end: 20100201

REACTIONS (2)
  - CHEST DISCOMFORT [None]
  - THROAT TIGHTNESS [None]
